FAERS Safety Report 13045202 (Version 1)
Quarter: 2016Q4

REPORT INFORMATION
  Report Type: Spontaneous
  Country: CH (occurrence: CH)
  Receive Date: 20161220
  Receipt Date: 20161220
  Transmission Date: 20170207
  Serious: Yes (Life-Threatening, Hospitalization, Other)
  Sender: FDA-Public Use
  Company Number: CH-ORION CORPORATION ORION PHARMA-ENTC2016-0743

PATIENT
  Age: 68 Year
  Sex: Male

DRUGS (6)
  1. MADOPAR [Concomitant]
     Active Substance: BENSERAZIDE HYDROCHLORIDE\LEVODOPA
     Dosage: STRENGTH: 75/300 MG
     Route: 065
  2. STALEVO [Suspect]
     Active Substance: CARBIDOPA\ENTACAPONE\LEVODOPA
     Indication: PARKINSON^S DISEASE
     Dosage: STRENGTH: 150/37.5/200 MG
     Route: 048
     Dates: start: 20161108
  3. PANTOPRAZOL [Concomitant]
     Active Substance: PANTOPRAZOLE SODIUM
     Route: 065
     Dates: start: 20161007
  4. AZILECT [Suspect]
     Active Substance: RASAGILINE MESYLATE
     Indication: PARKINSON^S DISEASE
     Route: 048
  5. SIFROL ER [Concomitant]
     Active Substance: PRAMIPEXOLE
     Route: 065
  6. APYDAN [Concomitant]
     Active Substance: OXCARBAZEPINE
     Route: 065
     Dates: start: 20161031

REACTIONS (3)
  - Acute myocardial infarction [Unknown]
  - Angina pectoris [Unknown]
  - Troponin T increased [Unknown]

NARRATIVE: CASE EVENT DATE: 20161109
